FAERS Safety Report 8268848-3 (Version None)
Quarter: 2012Q2

REPORT INFORMATION
  Report Type: 
  Country: None (occurrence: None)
  Receive Date: 20120409
  Receipt Date: 20120409
  Transmission Date: 20120825
  Serious: Yes (Other)
  Sender: FDA-Public Use
  Company Number: None

PATIENT
  Age: 51 Year
  Sex: Female
  Weight: 56.699 kg

DRUGS (2)
  1. CYMBALTA [Suspect]
     Indication: POST-TRAUMATIC STRESS DISORDER
     Dosage: 20.0 MG
     Route: 048
     Dates: start: 20110120, end: 20120402
  2. CLONIDINE [Concomitant]
     Route: 048

REACTIONS (19)
  - BLOOD PRESSURE INCREASED [None]
  - BALANCE DISORDER [None]
  - PAIN IN EXTREMITY [None]
  - EAR PAIN [None]
  - NAUSEA [None]
  - VISUAL IMPAIRMENT [None]
  - EYE PAIN [None]
  - ANGER [None]
  - INSOMNIA [None]
  - DISSOCIATION [None]
  - CHEST PAIN [None]
  - DIARRHOEA [None]
  - DYSPNOEA [None]
  - SUPRAVENTRICULAR TACHYCARDIA [None]
  - ANXIETY [None]
  - IMPAIRED WORK ABILITY [None]
  - HYPERTENSION [None]
  - SENSORY DISTURBANCE [None]
  - VERTIGO [None]
